FAERS Safety Report 18176010 (Version 1)
Quarter: 2020Q3

REPORT INFORMATION
  Report Type: Report from Study
  Country: IN (occurrence: IN)
  Receive Date: 20200820
  Receipt Date: 20200820
  Transmission Date: 20201103
  Serious: Yes (Death, Other)
  Sender: FDA-Public Use
  Company Number: NVSC2019IN074159

PATIENT
  Sex: Female

DRUGS (2)
  1. SPEXIB [Suspect]
     Active Substance: CERITINIB
     Indication: NON-SMALL CELL LUNG CANCER
     Dosage: 450 MG, QD
     Route: 065
     Dates: start: 20190914, end: 20191127
  2. SPEXIB [Suspect]
     Active Substance: CERITINIB
     Dosage: 300 MG, UNKNOWN
     Route: 048
     Dates: start: 20191128, end: 20200801

REACTIONS (5)
  - Malignant neoplasm progression [Unknown]
  - Non-small cell lung cancer [Unknown]
  - Vomiting [Unknown]
  - Neoplasm malignant [Fatal]
  - Hepatic pain [Unknown]

NARRATIVE: CASE EVENT DATE: 201911
